FAERS Safety Report 17826976 (Version 1)
Quarter: 2020Q2

REPORT INFORMATION
  Report Type: Report from Study
  Country: ZA (occurrence: ZA)
  Receive Date: 20200526
  Receipt Date: 20200526
  Transmission Date: 20200714
  Serious: Yes (Hospitalization, Other)
  Sender: FDA-Public Use
  Company Number: PHHY2017ZA118777

PATIENT
  Age: 29 Year
  Sex: Female

DRUGS (1)
  1. TUVIGIN [Suspect]
     Active Substance: FINGOLIMOD HYDROCHLORIDE
     Indication: RELAPSING-REMITTING MULTIPLE SCLEROSIS
     Dosage: 0.5 MG, QD
     Route: 048
     Dates: start: 20170810

REACTIONS (17)
  - Lymphadenopathy [Recovering/Resolving]
  - Hypotension [Unknown]
  - Hypopnoea [Unknown]
  - Muscular weakness [Unknown]
  - Heart rate decreased [Unknown]
  - Multiple sclerosis relapse [Recovered/Resolved]
  - Sialoadenitis [Unknown]
  - Salivary gland pain [Unknown]
  - Hypoaesthesia [Recovered/Resolved]
  - Pain [Recovered/Resolved]
  - Nausea [Unknown]
  - Infection [Recovering/Resolving]
  - Spinal pain [Unknown]
  - Chest discomfort [Unknown]
  - Oral candidiasis [Recovered/Resolved]
  - Hemiparesis [Recovered/Resolved]
  - Multiple sclerosis relapse [Unknown]

NARRATIVE: CASE EVENT DATE: 20170810
